FAERS Safety Report 7088524-2 (Version None)
Quarter: 2010Q4

REPORT INFORMATION
  Report Type: 
  Country: None (occurrence: None)
  Receive Date: 20101108
  Receipt Date: 20101102
  Transmission Date: 20110411
  Serious: Yes (Other)
  Sender: FDA-Public Use
  Company Number: DE-PFIZER INC-2010139973

PATIENT

DRUGS (3)
  1. ZOLOFT [Suspect]
  2. RISPERDAL [Suspect]
  3. AGOMELATINE [Suspect]

REACTIONS (1)
  - PNEUMONIA [None]
